FAERS Safety Report 26179307 (Version 1)
Quarter: 2025Q4

REPORT INFORMATION
  Report Type: Spontaneous
  Country: US (occurrence: None)
  Receive Date: 20251218
  Receipt Date: 20251218
  Transmission Date: 20260117
  Serious: Yes (Hospitalization)
  Sender: FDA-CTU
  Company Number: None

PATIENT
  Sex: Male

DRUGS (3)
  1. VYNDAMAX [Suspect]
     Active Substance: TAFAMIDIS
     Indication: Amyloidosis
     Dosage: FREQUENCY : DAILY;
     Route: 048
     Dates: start: 20251126
  2. KP VITAMIN D [Concomitant]
  3. VITAMIN B-12 TAB 1000 CR [Concomitant]

REACTIONS (1)
  - Prostate cancer [None]
